FAERS Safety Report 21020680 (Version 1)
Quarter: 2022Q2

REPORT INFORMATION
  Report Type: Spontaneous
  Country: KR (occurrence: KR)
  Receive Date: 20220629
  Receipt Date: 20220629
  Transmission Date: 20220720
  Serious: Yes (Other)
  Sender: FDA-Public Use
  Company Number: KR-AMGEN-KORSP2022108893

PATIENT

DRUGS (2)
  1. PROLIA [Suspect]
     Active Substance: DENOSUMAB
     Indication: Osteoporosis postmenopausal
     Dosage: 60 MILLIGRAM, Q6MO
     Route: 058
  2. Dicamax 1000 [Concomitant]

REACTIONS (9)
  - Bone loss [Unknown]
  - Adverse drug reaction [Unknown]
  - Rebound effect [Unknown]
  - Osteopenia [Unknown]
  - Osteoporosis [Unknown]
  - Bone density decreased [Unknown]
  - C-telopeptide increased [Unknown]
  - Serum procollagen type I N-terminal propeptide increased [Unknown]
  - Injection site pain [Unknown]
